FAERS Safety Report 11151855 (Version 5)
Quarter: 2016Q3

REPORT INFORMATION
  Report Type: Spontaneous
  Country: US (occurrence: US)
  Receive Date: 20150601
  Receipt Date: 20160711
  Transmission Date: 20161109
  Serious: Yes (Hospitalization, Other)
  Sender: FDA-Public Use
  Company Number: US-PFIZER INC-2015181152

PATIENT
  Age: 9 Year
  Sex: Male
  Weight: 33 kg

DRUGS (17)
  1. RISPERIDONE. [Interacting]
     Active Substance: RISPERIDONE
     Indication: DEPRESSION
  2. RISPERIDONE. [Interacting]
     Active Substance: RISPERIDONE
     Indication: EMOTIONAL DISORDER
  3. DEPAKOTE [Interacting]
     Active Substance: DIVALPROEX SODIUM
     Indication: MOOD ALTERED
     Dosage: 250 MG, 2X/DAY (2 IN 1 D) ONE IN THE MORNING AT 8:00 AND AT NOON
     Route: 048
     Dates: start: 2014
  4. ADDERALL [Concomitant]
     Active Substance: AMPHETAMINE ASPARTATE\AMPHETAMINE SULFATE\DEXTROAMPHETAMINE SACCHARATE\DEXTROAMPHETAMINE SULFATE
     Indication: PSYCHOMOTOR HYPERACTIVITY
  5. RISPERIDONE. [Interacting]
     Active Substance: RISPERIDONE
     Indication: ATTENTION DEFICIT/HYPERACTIVITY DISORDER
  6. CLONIDINE. [Interacting]
     Active Substance: CLONIDINE
     Indication: INSOMNIA
     Dosage: 1 MG, DAILY (1 IN 1 D)
     Route: 048
     Dates: start: 2014
  7. DEPAKOTE [Interacting]
     Active Substance: DIVALPROEX SODIUM
     Indication: ATTENTION DEFICIT/HYPERACTIVITY DISORDER
  8. RISPERIDONE. [Interacting]
     Active Substance: RISPERIDONE
     Indication: ABNORMAL BEHAVIOUR
     Dosage: 2 DF, DAILY (1 TABLET AT 4PM, 1 TABLET AT BEDTIME)
     Route: 048
     Dates: start: 201308
  9. CLONIDINE. [Interacting]
     Active Substance: CLONIDINE
     Indication: DEPRESSION
     Dosage: 1 MG, 1X/DAY
  10. OBETROL [Concomitant]
     Active Substance: AMPHETAMINE ASPARTATE\AMPHETAMINE SULFATE\DEXTROAMPHETAMINE SACCHARATE\DEXTROAMPHETAMINE SULFATE
     Indication: PSYCHOMOTOR HYPERACTIVITY
     Dosage: UNK (1 TABLET, 2 IN 1 D)
     Route: 048
  11. DEPAKOTE [Interacting]
     Active Substance: DIVALPROEX SODIUM
     Indication: DEPRESSION
  12. ADDERALL [Concomitant]
     Active Substance: AMPHETAMINE ASPARTATE\AMPHETAMINE SULFATE\DEXTROAMPHETAMINE SACCHARATE\DEXTROAMPHETAMINE SULFATE
     Indication: ATTENTION DEFICIT/HYPERACTIVITY DISORDER
     Dosage: 2 DF, 2X/DAY (1 TABLET AT 8AM, 1 TABLET AT 12 NOON)
     Dates: start: 201308
  13. OBETROL [Concomitant]
     Active Substance: AMPHETAMINE ASPARTATE\AMPHETAMINE SULFATE\DEXTROAMPHETAMINE SACCHARATE\DEXTROAMPHETAMINE SULFATE
     Indication: ATTENTION DEFICIT/HYPERACTIVITY DISORDER
     Dosage: UNK (1 TABLET, 2 IN 1 D)
     Route: 048
     Dates: start: 201308, end: 20150507
  14. QUILLIVANT XR [Suspect]
     Active Substance: METHYLPHENIDATE HYDROCHLORIDE
     Indication: ATTENTION DEFICIT/HYPERACTIVITY DISORDER
     Dosage: 4 ML, 1X/DAY (EVERY MORNING)
     Route: 048
     Dates: start: 20150507, end: 20160527
  15. RISPERIDONE. [Interacting]
     Active Substance: RISPERIDONE
     Indication: AFFECTIVE DISORDER
  16. CLONIDINE. [Interacting]
     Active Substance: CLONIDINE
     Indication: BALANCE DISORDER
  17. CLONIDINE. [Interacting]
     Active Substance: CLONIDINE
     Indication: ABNORMAL BEHAVIOUR
     Dosage: 0.5 DF, 1X/DAY (AT NIGHT AT BEDTIME)
     Route: 048
     Dates: start: 2014

REACTIONS (6)
  - Drug interaction [Not Recovered/Not Resolved]
  - Abdominal pain upper [Recovered/Resolved]
  - Irritability [Not Recovered/Not Resolved]
  - Drug intolerance [Unknown]
  - Dyspepsia [Not Recovered/Not Resolved]
  - Discomfort [Not Recovered/Not Resolved]

NARRATIVE: CASE EVENT DATE: 201505
